FAERS Safety Report 10967942 (Version 1)
Quarter: 2015Q1

REPORT INFORMATION
  Report Type: Spontaneous
  Country: BE (occurrence: BE)
  Receive Date: 20150330
  Receipt Date: 20150330
  Transmission Date: 20150721
  Serious: Yes (Hospitalization, Other)
  Sender: FDA-Public Use
  Company Number: BE-PFIZER INC-2015109673

PATIENT
  Sex: Female

DRUGS (2)
  1. SPIRALEXA [Concomitant]
  2. MEDROL [Suspect]
     Active Substance: METHYLPREDNISOLONE
     Dosage: 32 MG, SINGLE
     Route: 048

REACTIONS (1)
  - Cardiac flutter [Unknown]
